FAERS Safety Report 5161649-4 (Version None)
Quarter: 2006Q4

REPORT INFORMATION
  Report Type: 
  Country: None (occurrence: None)
  Receive Date: 20061130
  Receipt Date: 20060203
  Transmission Date: 20070319
  Serious: No
  Sender: FDA-Public Use
  Company Number: US-BRISTOL-MYERS SQUIBB COMPANY-13271747

PATIENT
  Age: 56 Year
  Sex: Female
  Weight: 106 kg

DRUGS (12)
  1. GLUCOPHAGE XR [Suspect]
     Indication: DIABETES MELLITUS MANAGEMENT
     Route: 048
  2. HUMALOG [Concomitant]
  3. LANTUS [Concomitant]
  4. LASIX [Concomitant]
  5. TEGRETOL [Concomitant]
  6. DEPAKOTE [Concomitant]
  7. ACCUPRIL [Concomitant]
  8. HYZAAR [Concomitant]
  9. SYNTHROID [Concomitant]
  10. LIPITOR [Concomitant]
  11. FERROUS SULFATE TAB [Concomitant]
  12. ASPIRIN [Concomitant]

REACTIONS (1)
  - BLOOD GLUCOSE INCREASED [None]
